FAERS Safety Report 23134180 (Version 6)
Quarter: 2024Q1

REPORT INFORMATION
  Report Type: Spontaneous
  Country: CA (occurrence: CA)
  Receive Date: 20231101
  Receipt Date: 20240124
  Transmission Date: 20240409
  Serious: Yes (Other)
  Sender: FDA-Public Use
  Company Number: CA-PFIZER INC-PV202300139797

PATIENT
  Age: 63 Year
  Sex: Male
  Weight: 86 kg

DRUGS (18)
  1. ZIRABEV [Suspect]
     Active Substance: BEVACIZUMAB-BVZR
     Indication: Glioblastoma
     Dosage: 10 MG/KG, EVERY 2 WEEKS
     Route: 042
  2. ZIRABEV [Suspect]
     Active Substance: BEVACIZUMAB-BVZR
     Dosage: 860 MG
     Route: 042
     Dates: start: 20230815
  3. ZIRABEV [Suspect]
     Active Substance: BEVACIZUMAB-BVZR
     Dosage: 860 MG
     Route: 042
     Dates: start: 20230829
  4. ZIRABEV [Suspect]
     Active Substance: BEVACIZUMAB-BVZR
     Dosage: 860 MG
     Route: 042
     Dates: start: 20230912
  5. ZIRABEV [Suspect]
     Active Substance: BEVACIZUMAB-BVZR
     Dosage: 860 MG
     Route: 042
     Dates: start: 20230912
  6. ZIRABEV [Suspect]
     Active Substance: BEVACIZUMAB-BVZR
     Dosage: 860 MG
     Route: 042
     Dates: start: 20230926
  7. ZIRABEV [Suspect]
     Active Substance: BEVACIZUMAB-BVZR
     Dosage: 860 MG
     Route: 042
     Dates: start: 20230926
  8. ZIRABEV [Suspect]
     Active Substance: BEVACIZUMAB-BVZR
     Dosage: 860 MG
     Route: 042
     Dates: start: 20231010
  9. ZIRABEV [Suspect]
     Active Substance: BEVACIZUMAB-BVZR
     Dosage: 860 MG
     Route: 042
     Dates: start: 20231010
  10. ZIRABEV [Suspect]
     Active Substance: BEVACIZUMAB-BVZR
     Dosage: 860 MG
     Route: 042
     Dates: start: 20231024
  11. ZIRABEV [Suspect]
     Active Substance: BEVACIZUMAB-BVZR
     Dosage: 860 MG
     Route: 042
     Dates: start: 20231024
  12. ZIRABEV [Suspect]
     Active Substance: BEVACIZUMAB-BVZR
     Dosage: 860 MG
     Route: 042
     Dates: start: 20231107
  13. ZIRABEV [Suspect]
     Active Substance: BEVACIZUMAB-BVZR
     Dosage: 860 MG
     Route: 042
     Dates: start: 20231107
  14. ZIRABEV [Suspect]
     Active Substance: BEVACIZUMAB-BVZR
     Dosage: 860 MG
     Route: 042
     Dates: start: 20231121
  15. ZIRABEV [Suspect]
     Active Substance: BEVACIZUMAB-BVZR
     Dosage: 860 MG
     Route: 042
     Dates: start: 20231121
  16. ZIRABEV [Suspect]
     Active Substance: BEVACIZUMAB-BVZR
     Dosage: 860 MG
     Route: 042
     Dates: start: 20231208
  17. ZIRABEV [Suspect]
     Active Substance: BEVACIZUMAB-BVZR
     Dosage: 860 MG
     Route: 042
     Dates: start: 20231208
  18. ETOPOSIDE [Concomitant]
     Active Substance: ETOPOSIDE
     Dosage: UNK
     Dates: start: 202307

REACTIONS (12)
  - Asthenia [Recovering/Resolving]
  - Seizure [Unknown]
  - Headache [Recovered/Resolved]
  - Swelling [Unknown]
  - Throat irritation [Recovered/Resolved]
  - Dysphagia [Recovering/Resolving]
  - Hyperaesthesia [Not Recovered/Not Resolved]
  - Pain [Unknown]
  - Headache [Recovered/Resolved]
  - Neoplasm progression [Unknown]
  - Off label use [Unknown]
  - Product use issue [Unknown]

NARRATIVE: CASE EVENT DATE: 20230101
